FAERS Safety Report 8505017-3 (Version None)
Quarter: 2012Q3

REPORT INFORMATION
  Report Type: 
  Country: None (occurrence: None)
  Receive Date: 20120712
  Receipt Date: 20120706
  Transmission Date: 20120928
  Serious: Yes (Life-Threatening)
  Sender: FDA-Public Use
  Company Number: JP-009507513-1207JPN000765

PATIENT

DRUGS (6)
  1. REBETOL [Suspect]
     Dosage: 200 MG, QD
     Route: 048
     Dates: start: 20120504
  2. PEG-INTRON [Suspect]
     Indication: HEPATITIS C
     Dosage: 1,5 UG/KG/WEEK
     Route: 058
     Dates: start: 20120330, end: 20120615
  3. TELAPREVIR [Suspect]
     Indication: HEPATITIS C
     Dosage: 2250 MG, QD
     Route: 048
     Dates: start: 20120330, end: 20120615
  4. REBETOL [Suspect]
     Dosage: 400 MG, QD
     Route: 048
     Dates: start: 20120427, end: 20120503
  5. REBETOL [Suspect]
     Indication: HEPATITIS C
     Dosage: 600 MG, QD
     Route: 048
     Dates: start: 20120330, end: 20120426
  6. REBETOL [Suspect]
     Dosage: 200 MG, QD
     Route: 048
     Dates: end: 20120615

REACTIONS (1)
  - ANAEMIA [None]
